FAERS Safety Report 8158385-9 (Version None)
Quarter: 2012Q1

REPORT INFORMATION
  Report Type: 
  Country: None (occurrence: None)
  Receive Date: 20120223
  Receipt Date: 20120213
  Transmission Date: 20120608
  Serious: Yes (Other)
  Sender: FDA-Public Use
  Company Number: US-BAYER-2012-017544

PATIENT
  Sex: Female

DRUGS (1)
  1. MIRENA [Suspect]
     Dosage: UNK
     Route: 015
     Dates: start: 20050601, end: 20110901

REACTIONS (8)
  - ABORTION SPONTANEOUS [None]
  - WEIGHT INCREASED [None]
  - POLYCYSTIC OVARIES [None]
  - PREGNANCY WITH CONTRACEPTIVE DEVICE [None]
  - DEVICE DISLOCATION [None]
  - VAGINAL HAEMORRHAGE [None]
  - PROCEDURAL PAIN [None]
  - ENDOMETRIAL HYPERTROPHY [None]
